FAERS Safety Report 6956930-X (Version None)
Quarter: 2010Q3

REPORT INFORMATION
  Report Type: 
  Country: None (occurrence: None)
  Receive Date: 20100830
  Receipt Date: 20100819
  Transmission Date: 20110219
  Serious: Yes (Hospitalization, Other)
  Sender: FDA-Public Use
  Company Number: US-AMGEN-KDL425433

PATIENT
  Sex: Female

DRUGS (2)
  1. PROLIA [Suspect]
     Indication: OSTEOPOROSIS POSTMENOPAUSAL
     Dates: start: 20100701
  2. UNSPECIFIED ANTIBIOTIC [Concomitant]

REACTIONS (13)
  - ABDOMINAL PAIN [None]
  - ANGER [None]
  - ASTHENIA [None]
  - BACK PAIN [None]
  - CYSTITIS BACTERIAL [None]
  - INJECTION SITE ANAESTHESIA [None]
  - INJECTION SITE PAIN [None]
  - PAIN IN JAW [None]
  - PRURITUS [None]
  - RESTLESSNESS [None]
  - SKIN EXFOLIATION [None]
  - SUICIDAL IDEATION [None]
  - TOOTHACHE [None]
